FAERS Safety Report 5585116-9 (Version None)
Quarter: 2008Q1

REPORT INFORMATION
  Report Type: 
  Country: None (occurrence: None)
  Receive Date: 20080107
  Receipt Date: 20080107
  Transmission Date: 20080703
  Serious: No
  Sender: FDA-Public Use
  Company Number: None

PATIENT
  Age: 75 Year
  Sex: Female

DRUGS (7)
  1. AUGMENTIN '125' [Suspect]
     Dates: start: 20060513, end: 20060520
  2. LIPITOR [Concomitant]
  3. LIBRAX [Concomitant]
  4. NICAIN [Concomitant]
  5. SYNTHROID [Concomitant]
  6. UNASYN [Concomitant]
  7. CIPROFLOXACIN [Concomitant]

REACTIONS (8)
  - ALANINE AMINOTRANSFERASE INCREASED [None]
  - ASPARTATE AMINOTRANSFERASE INCREASED [None]
  - BLOOD BILIRUBIN INCREASED [None]
  - CHROMATURIA [None]
  - JAUNDICE [None]
  - LIVER INJURY [None]
  - NAUSEA [None]
  - PRURITUS [None]
